FAERS Safety Report 4381405-4 (Version None)
Quarter: 2004Q2

REPORT INFORMATION
  Report Type: 
  Country: None (occurrence: None)
  Receive Date: 20040616
  Receipt Date: 20040527
  Transmission Date: 20050107
  Serious: Yes (Life-Threatening, Hospitalization, Disabling, Other)
  Sender: FDA-Public Use
  Company Number: USA040464496

PATIENT
  Age: 61 Year
  Sex: Female

DRUGS (1)
  1. PROZAC [Suspect]
     Indication: MAJOR DEPRESSION
     Dosage: 140 MG/1 DAY
     Dates: start: 19890101

REACTIONS (12)
  - CARDIO-RESPIRATORY ARREST [None]
  - DRUG INEFFECTIVE [None]
  - FALL [None]
  - INFLUENZA [None]
  - LOSS OF CONSCIOUSNESS [None]
  - LOWER LIMB FRACTURE [None]
  - MEDICAL DEVICE COMPLICATION [None]
  - PHARMACEUTICAL PRODUCT COMPLAINT [None]
  - PNEUMONIA [None]
  - PULMONARY HAEMORRHAGE [None]
  - SHOCK [None]
  - VICTIM OF SPOUSAL ABUSE [None]
